FAERS Safety Report 15725608 (Version 8)
Quarter: 2019Q1

REPORT INFORMATION
  Report Type: Spontaneous
  Country: US (occurrence: US)
  Receive Date: 20181215
  Receipt Date: 20190307
  Transmission Date: 20190417
  Serious: Yes (Hospitalization, Other)
  Sender: FDA-Public Use
  Company Number: PHEH2018US052426

PATIENT
  Sex: Male

DRUGS (4)
  1. AFINITOR [Suspect]
     Active Substance: EVEROLIMUS
     Dosage: 5 MG, QD
     Route: 048
     Dates: start: 201901
  2. LENVATINIB [Suspect]
     Active Substance: LENVATINIB
     Indication: RENAL CANCER
     Dosage: 18 MG, QD
     Route: 048
     Dates: start: 20181128, end: 201812
  3. LENVATINIB [Suspect]
     Active Substance: LENVATINIB
     Dosage: 18 MG, QD
     Route: 048
     Dates: start: 201901
  4. AFINITOR [Suspect]
     Active Substance: EVEROLIMUS
     Indication: RENAL CANCER
     Dosage: 5 MG, QD
     Route: 048
     Dates: start: 20181128, end: 201812

REACTIONS (13)
  - Renal cancer [Recovering/Resolving]
  - Dry skin [Unknown]
  - Metastases to bone [Recovering/Resolving]
  - Pruritus [Recovering/Resolving]
  - Infection [Recovered/Resolved]
  - Malignant neoplasm progression [Recovering/Resolving]
  - Limb discomfort [Recovered/Resolved]
  - Stomatitis [Recovered/Resolved]
  - Feeding disorder [Recovered/Resolved]
  - Dehydration [Recovered/Resolved]
  - Throat irritation [Unknown]
  - Rash [Recovered/Resolved]
  - Heart rate increased [Unknown]

NARRATIVE: CASE EVENT DATE: 2018
